FAERS Safety Report 4363334-5 (Version None)
Quarter: 2004Q2

REPORT INFORMATION
  Report Type: 
  Country: None (occurrence: None)
  Receive Date: 20040517
  Receipt Date: 20040206
  Transmission Date: 20050107
  Serious: No
  Sender: FDA-Public Use
  Company Number: S04-USA-00568-01

PATIENT
  Age: 89 Year
  Sex: Female

DRUGS (3)
  1. NAMENDA [Suspect]
     Indication: DEMENTIA ALZHEIMER'S TYPE
     Dosage: 5 MG QD PO
     Route: 048
     Dates: start: 20040131
  2. BLOOD PRESSURE MEDICATIONS (NOS) [Concomitant]
  3. LOTS OF VITAMINS (NOS) [Concomitant]

REACTIONS (1)
  - TONGUE BLACK HAIRY [None]
